FAERS Safety Report 17282297 (Version 1)
Quarter: 2020Q1

REPORT INFORMATION
  Report Type: Spontaneous
  Country: US (occurrence: US)
  Receive Date: 20200116
  Receipt Date: 20200116
  Transmission Date: 20200409
  Serious: Yes (Hospitalization, Disabling)
  Sender: FDA-Public Use
  Company Number: None

PATIENT
  Age: 39 Year
  Sex: Female
  Weight: 94.05 kg

DRUGS (2)
  1. CELEXA [Concomitant]
     Active Substance: CITALOPRAM HYDROBROMIDE
  2. LATUDA [Suspect]
     Active Substance: LURASIDONE HYDROCHLORIDE
     Indication: ANXIETY
     Dosage: ?          QUANTITY:30 TABLET(S);?
     Route: 048
     Dates: start: 20190625, end: 20200115

REACTIONS (15)
  - Gastroenteritis viral [None]
  - Feeling of body temperature change [None]
  - Hyperhidrosis [None]
  - Diarrhoea [None]
  - Suicidal ideation [None]
  - Feeling hot [None]
  - Tremor [None]
  - Serotonin syndrome [None]
  - Nausea [None]
  - Chills [None]
  - Feeling abnormal [None]
  - Anxiety [None]
  - Weight decreased [None]
  - Depression [None]
  - Impaired work ability [None]

NARRATIVE: CASE EVENT DATE: 20200103
